FAERS Safety Report 12877660 (Version 2)
Quarter: 2016Q4

REPORT INFORMATION
  Report Type: Spontaneous
  Country: US (occurrence: US)
  Receive Date: 20161024
  Receipt Date: 20161031
  Transmission Date: 20170207
  Serious: No
  Sender: FDA-Public Use
  Company Number: US-PFIZER INC-2016490515

PATIENT
  Sex: Female

DRUGS (1)
  1. LATANOPROST. [Suspect]
     Active Substance: LATANOPROST
     Dosage: UNK

REACTIONS (2)
  - Drug ineffective [Unknown]
  - Product substitution issue [Unknown]
